FAERS Safety Report 8270284-0 (Version None)
Quarter: 2012Q2

REPORT INFORMATION
  Report Type: 
  Country: None (occurrence: None)
  Receive Date: 20120410
  Receipt Date: 20120404
  Transmission Date: 20120825
  Serious: Yes (Other)
  Sender: FDA-Public Use
  Company Number: BR-SANOFI-AVENTIS-2012SA023521

PATIENT
  Age: 34 Year
  Sex: Male
  Weight: 59 kg

DRUGS (5)
  1. LANTUS [Suspect]
     Route: 058
     Dates: start: 20090101
  2. ATENOLOL [Concomitant]
     Indication: BLOOD PRESSURE
     Route: 048
  3. PROCRIT [Concomitant]
     Indication: RENAL DISORDER
     Route: 058
     Dates: start: 20111101
  4. LOSARTAN POTASSIUM [Concomitant]
     Indication: BLOOD PRESSURE
     Route: 048
  5. HUMALOG [Concomitant]
     Dosage: DOSE: ACCORDING TO GLYCEMIA
     Route: 058
     Dates: start: 20090101

REACTIONS (10)
  - HYPOGLYCAEMIA [None]
  - SLUGGISHNESS [None]
  - DECREASED APPETITE [None]
  - FEELING ABNORMAL [None]
  - HYPERGLYCAEMIA [None]
  - PSYCHIATRIC SYMPTOM [None]
  - VOMITING [None]
  - RENAL FAILURE [None]
  - HYPERHIDROSIS [None]
  - FEELING COLD [None]
